FAERS Safety Report 25993247 (Version 1)
Quarter: 2025Q4

REPORT INFORMATION
  Report Type: Spontaneous
  Country: JP (occurrence: JP)
  Receive Date: 20251104
  Receipt Date: 20251104
  Transmission Date: 20260118
  Serious: Yes (Other)
  Sender: AMGEN
  Company Number: JP-AMGEN-JPNSP2025213062

PATIENT

DRUGS (1)
  1. EVENITY [Suspect]
     Active Substance: ROMOSOZUMAB-AQQG
     Indication: Osteoporosis
     Dosage: 210 MILLIGRAM, QMO
     Route: 058

REACTIONS (7)
  - Spinal fracture [Recovered/Resolved]
  - Enterocolitis [Unknown]
  - Bronchitis [Unknown]
  - Herpes zoster [Unknown]
  - Paronychia [Unknown]
  - Rash [Unknown]
  - Skin ulcer [Unknown]
